FAERS Safety Report 12260859 (Version 1)
Quarter: 2016Q2

REPORT INFORMATION
  Report Type: Spontaneous
  Country: US (occurrence: None)
  Receive Date: 20160412
  Receipt Date: 20160412
  Transmission Date: 20160815
  Serious: Yes (Death)
  Sender: FDA-Public Use
  Company Number: None

PATIENT
  Age: 83 Year
  Sex: Female
  Weight: 96.3 kg

DRUGS (3)
  1. CILOSTAZOL, 50 MG [Suspect]
     Active Substance: CILOSTAZOL
     Route: 048
  2. CLOPIDOGREL [Concomitant]
     Active Substance: CLOPIDOGREL BISULFATE
  3. WARFARIN, 5 MG [Suspect]
     Active Substance: WARFARIN
     Indication: ATRIAL FIBRILLATION
     Route: 048

REACTIONS (3)
  - Unresponsive to stimuli [None]
  - Haemorrhage intracranial [None]
  - Multiple injuries [None]

NARRATIVE: CASE EVENT DATE: 20160227
